FAERS Safety Report 6255699-4 (Version None)
Quarter: 2009Q3

REPORT INFORMATION
  Report Type: 
  Country: None (occurrence: None)
  Receive Date: 20090701
  Receipt Date: 20090624
  Transmission Date: 20100115
  Serious: Yes (Other)
  Sender: FDA-Public Use
  Company Number: 230410K09GRC

PATIENT
  Sex: Female

DRUGS (1)
  1. REBIF [Suspect]

REACTIONS (2)
  - CYST [None]
  - HYSTERECTOMY [None]
